FAERS Safety Report 8179501-9 (Version None)
Quarter: 2012Q1

REPORT INFORMATION
  Report Type: 
  Country: None (occurrence: None)
  Receive Date: 20120302
  Receipt Date: 20120222
  Transmission Date: 20120608
  Serious: Yes (Hospitalization)
  Sender: FDA-Public Use
  Company Number: DE-JNJFOC-20120211442

PATIENT
  Age: 81 Year
  Sex: Female

DRUGS (23)
  1. VENLAFAXINE HYDROCHLORIDE [Suspect]
     Route: 048
     Dates: start: 20111115, end: 20111122
  2. LITHIUM CARBONATE [Suspect]
     Route: 048
     Dates: start: 20120119, end: 20120119
  3. LORAZEPAM [Concomitant]
     Route: 048
     Dates: start: 20111228, end: 20120101
  4. LITHIUM CARBONATE [Suspect]
     Indication: PRODUCT USED FOR UNKNOWN INDICATION
     Route: 048
     Dates: start: 20120113, end: 20120118
  5. HALDOL [Suspect]
     Route: 048
     Dates: start: 20120101, end: 20120110
  6. VENLAFAXINE HYDROCHLORIDE [Suspect]
     Route: 048
     Dates: start: 20111216, end: 20111219
  7. HALDOL [Suspect]
     Route: 048
     Dates: start: 20120130
  8. HALDOL [Suspect]
     Route: 048
     Dates: start: 20120118, end: 20120129
  9. VENLAFAXINE HYDROCHLORIDE [Suspect]
     Indication: PRODUCT USED FOR UNKNOWN INDICATION
     Route: 048
     Dates: start: 20111220
  10. VENLAFAXINE HYDROCHLORIDE [Suspect]
     Route: 048
     Dates: start: 20111123, end: 20111129
  11. LITHIUM CARBONATE [Suspect]
     Route: 048
     Dates: start: 20120112, end: 20120112
  12. METOPROLOL TARTRATE [Concomitant]
     Route: 048
  13. MOVIPREP [Concomitant]
     Route: 048
     Dates: start: 20111227
  14. VENLAFAXINE HYDROCHLORIDE [Suspect]
     Route: 048
     Dates: start: 20111130, end: 20111206
  15. VENLAFAXINE HYDROCHLORIDE [Suspect]
     Route: 048
     Dates: start: 20111202, end: 20111215
  16. LITHIUM CARBONATE [Suspect]
     Route: 048
     Dates: start: 20120111, end: 20120111
  17. HALDOL [Suspect]
     Indication: PRODUCT USED FOR UNKNOWN INDICATION
     Route: 048
     Dates: start: 20120117, end: 20120117
  18. HALDOL [Suspect]
     Route: 048
     Dates: start: 20120111, end: 20120116
  19. ASPIRIN [Concomitant]
     Route: 048
  20. LORAZEPAM [Concomitant]
     Route: 048
     Dates: start: 20120102, end: 20120109
  21. LORAZEPAM [Concomitant]
     Route: 048
     Dates: start: 20111213, end: 20111227
  22. ENALAPRIL MALEATE AND HYDROCHLOROTHIAZIDE [Concomitant]
     Route: 048
  23. NITRENDIPIN [Concomitant]
     Route: 048

REACTIONS (5)
  - CONTUSION [None]
  - TREMOR [None]
  - FALL [None]
  - GENERAL PHYSICAL HEALTH DETERIORATION [None]
  - ATAXIA [None]
